FAERS Safety Report 9995661 (Version 1)
Quarter: 2014Q1

REPORT INFORMATION
  Report Type: Spontaneous
  Country: US (occurrence: US)
  Receive Date: 20140311
  Receipt Date: 20140311
  Transmission Date: 20141002
  Serious: Yes (Other)
  Sender: FDA-Public Use
  Company Number: US-JNJFOC-20140302912

PATIENT
  Sex: Female
  Weight: 65.77 kg

DRUGS (14)
  1. REMICADE [Suspect]
     Indication: RHEUMATOID ARTHRITIS
     Route: 042
  2. SOLU-MEDROL [Concomitant]
     Indication: RHEUMATOID ARTHRITIS
     Route: 042
     Dates: start: 2012
  3. PREDNISONE [Concomitant]
     Indication: RHEUMATOID ARTHRITIS
     Route: 048
     Dates: start: 201304
  4. SUMATRIPTAN [Concomitant]
     Indication: MIGRAINE
     Route: 048
  5. LASIX [Concomitant]
     Indication: OEDEMA PERIPHERAL
     Route: 048
  6. POTASSIUM CHLORIDE [Concomitant]
     Indication: OEDEMA PERIPHERAL
     Route: 048
  7. ZOLOFT [Concomitant]
     Indication: DEPRESSION
     Route: 048
  8. ESTRADIOL [Concomitant]
     Indication: HYSTERECTOMY
     Route: 065
  9. LOSARTAN [Concomitant]
     Indication: BLOOD PRESSURE
     Route: 048
  10. ZOFRAN [Concomitant]
     Indication: NAUSEA
     Route: 065
  11. CLONAZEPAM [Concomitant]
     Indication: ANXIETY
     Route: 048
     Dates: start: 2000
  12. ADVIL [Concomitant]
     Route: 048
  13. TRAMADOL [Concomitant]
     Indication: PAIN
     Route: 048
  14. BOTOX [Concomitant]
     Route: 065

REACTIONS (2)
  - Angina pectoris [Unknown]
  - Drug ineffective [Unknown]
